FAERS Safety Report 15411056 (Version 1)
Quarter: 2018Q3

REPORT INFORMATION
  Report Type: Spontaneous
  Country: TR (occurrence: TR)
  Receive Date: 20180921
  Receipt Date: 20180921
  Transmission Date: 20181010
  Serious: Yes (Other)
  Sender: FDA-Public Use
  Company Number: TR-LUPIN PHARMACEUTICALS INC.-2018-06499

PATIENT
  Age: 23 Year
  Sex: Female

DRUGS (1)
  1. METOCLOPRAMIDE. [Suspect]
     Active Substance: METOCLOPRAMIDE
     Indication: NAUSEA
     Dosage: UNK
     Route: 042

REACTIONS (3)
  - Kounis syndrome [Recovering/Resolving]
  - Anaphylactic reaction [Recovering/Resolving]
  - Anaphylactic shock [Recovering/Resolving]
